FAERS Safety Report 25261094 (Version 2)
Quarter: 2025Q2

REPORT INFORMATION
  Report Type: Report from Study
  Country: US (occurrence: US)
  Receive Date: 20250501
  Receipt Date: 20250626
  Transmission Date: 20250717
  Serious: Yes (Hospitalization, Other)
  Sender: MALLINCKRODT
  Company Number: US-MALLINCKRODT-MNK202502476

PATIENT
  Sex: Female

DRUGS (2)
  1. CORTICOTROPIN [Suspect]
     Active Substance: CORTICOTROPIN
     Indication: Sarcoidosis
  2. CORTICOTROPIN [Suspect]
     Active Substance: CORTICOTROPIN

REACTIONS (6)
  - Diabetes mellitus [Not Recovered/Not Resolved]
  - Gait inability [Recovering/Resolving]
  - Dialysis [Unknown]
  - Cerebrovascular accident [Unknown]
  - Fall [Unknown]
  - Ill-defined disorder [Unknown]
